FAERS Safety Report 11637993 (Version 1)
Quarter: 2015Q4

REPORT INFORMATION
  Report Type: Spontaneous
  Country: US (occurrence: US)
  Receive Date: 20151016
  Receipt Date: 20151016
  Transmission Date: 20160304
  Serious: No
  Sender: FDA-Public Use
  Company Number: US-INDIVIOR-RB-081137-2015

PATIENT
  Age: 34 Year
  Sex: Female

DRUGS (3)
  1. THORAZINE [Concomitant]
     Active Substance: CHLORPROMAZINE
     Indication: PSYCHOTIC DISORDER
     Dosage: UNK DAILY
     Route: 048
  2. SUBOXONE [Suspect]
     Active Substance: BUPRENORPHINE HYDROCHLORIDE\NALOXONE HYDROCHLORIDE
     Indication: DRUG DEPENDENCE
     Dosage: 4 MG TWICE A DAY
     Route: 060
     Dates: start: 20150708, end: 20150708
  3. NEURONTIN [Concomitant]
     Active Substance: GABAPENTIN
     Indication: PRODUCT USED FOR UNKNOWN INDICATION
     Dosage: UNK DAILY
     Route: 048

REACTIONS (7)
  - Vomiting [Recovering/Resolving]
  - Somnolence [Recovering/Resolving]
  - Feeling abnormal [Not Recovered/Not Resolved]
  - Dysarthria [Recovering/Resolving]
  - Hot flush [Recovering/Resolving]
  - Hyperhidrosis [Recovering/Resolving]
  - Product preparation error [Recovered/Resolved]

NARRATIVE: CASE EVENT DATE: 20150708
